FAERS Safety Report 15095289 (Version 1)
Quarter: 2018Q3

REPORT INFORMATION
  Report Type: Spontaneous
  Country: CH (occurrence: CH)
  Receive Date: 20180702
  Receipt Date: 20180702
  Transmission Date: 20181010
  Serious: Yes (Hospitalization)
  Sender: FDA-Public Use
  Company Number: CH-TEVA-2018-CH-919306

PATIENT
  Sex: Male

DRUGS (6)
  1. SERESTA 15MG [Concomitant]
  2. ATACAND PLUS 8/12.5MG [Concomitant]
  3. ATORVASTATIN?MEPHA 40MG [Suspect]
     Active Substance: ATORVASTATIN
     Route: 065
  4. ASPIRIN CARDIO [Concomitant]
     Active Substance: ASPIRIN
  5. LYRICA [Concomitant]
     Active Substance: PREGABALIN
  6. SERETIDE 250MG METERED?DOSE INHALER [Concomitant]

REACTIONS (2)
  - Dermatitis allergic [Recovered/Resolved]
  - Dyspnoea [Recovered/Resolved]

NARRATIVE: CASE EVENT DATE: 20180607
